FAERS Safety Report 8516722-7 (Version None)
Quarter: 2012Q2

REPORT INFORMATION
  Report Type: 
  Country: None (occurrence: None)
  Receive Date: 20120406
  Receipt Date: 20101223
  Transmission Date: 20120825
  Serious: Yes (Other)
  Sender: FDA-Public Use
  Company Number: PHHY2010US88746

PATIENT
  Age: 68 Year
  Sex: Female

DRUGS (1)
  1. TASIGNA [Suspect]
     Dosage: 400 MG, BID, ORAL
     Route: 048
     Dates: start: 20100929

REACTIONS (10)
  - HYPOGEUSIA [None]
  - MYALGIA [None]
  - ECCHYMOSIS [None]
  - SKIN HAEMORRHAGE [None]
  - HERPES ZOSTER [None]
  - FATIGUE [None]
  - CONCOMITANT DISEASE AGGRAVATED [None]
  - HYPOSMIA [None]
  - DRY SKIN [None]
  - NASOPHARYNGITIS [None]
